FAERS Safety Report 5878412-9 (Version None)
Quarter: 2008Q3

REPORT INFORMATION
  Report Type: 
  Country: None (occurrence: None)
  Receive Date: 20080909
  Receipt Date: 20080825
  Transmission Date: 20090109
  Serious: Yes (Hospitalization)
  Sender: FDA-Public Use
  Company Number: 1000000796

PATIENT
  Sex: Female

DRUGS (2)
  1. CITALOPRAM HYDROBROMIDE [Suspect]
     Indication: DEPRESSION
     Dosage: ORAL
     Route: 048
     Dates: start: 20080101, end: 20080701
  2. PROZAC [Suspect]
     Dosage: (0.5 DOSAGE FORMS, ONCE) ORAL
     Route: 048
     Dates: start: 20080821, end: 20080821

REACTIONS (2)
  - HYPOCALCAEMIA [None]
  - HYPONATRAEMIA [None]
